FAERS Safety Report 8150764-9 (Version None)
Quarter: 2012Q1

REPORT INFORMATION
  Report Type: 
  Country: None (occurrence: None)
  Receive Date: 20120220
  Receipt Date: 20120214
  Transmission Date: 20120608
  Serious: Yes (Hospitalization, Other)
  Sender: FDA-Public Use
  Company Number: US-BAYER-200934512NA

PATIENT
  Age: 50 Year
  Sex: Female
  Weight: 129.71 kg

DRUGS (8)
  1. WARFARIN SODIUM [Concomitant]
     Indication: PULMONARY EMBOLISM
     Dosage: 6 MG, HS
  2. LASIX [Concomitant]
     Indication: FLUID RETENTION
     Route: 042
  3. WARFARIN SODIUM [Concomitant]
     Indication: DEEP VEIN THROMBOSIS
     Dosage: 7.5 MG, UNK
  4. BUMEX [Concomitant]
     Dosage: 3 MG, BID
  5. MINOCYCLINE HCL [Concomitant]
     Dosage: 100 MG, QD
  6. FOLIC ACID [Concomitant]
     Dosage: 1 MG, UNK
  7. ASCORBIC ACID [Concomitant]
     Dosage: 1000 MG, UNK
  8. YASMIN [Suspect]
     Indication: CONTRACEPTION
     Dosage: UNK
     Dates: start: 20010101, end: 20071201

REACTIONS (4)
  - DEEP VEIN THROMBOSIS [None]
  - PULMONARY HYPERTENSION [None]
  - THROMBOSIS [None]
  - PULMONARY EMBOLISM [None]
